FAERS Safety Report 9097769 (Version 1)
Quarter: 2013Q1

REPORT INFORMATION
  Report Type: Spontaneous
  Country: IT (occurrence: IT)
  Receive Date: 20130212
  Receipt Date: 20130212
  Transmission Date: 20140127
  Serious: Yes (Hospitalization)
  Sender: FDA-Public Use
  Company Number: IT-ROCHE-1189949

PATIENT
  Age: 8 Year
  Sex: Female

DRUGS (7)
  1. ROACTEMRA [Suspect]
     Indication: JUVENILE IDIOPATHIC ARTHRITIS
     Route: 042
     Dates: start: 20130201, end: 20130201
  2. DELTACORTENE [Concomitant]
     Route: 048
  3. CELLCEPT [Concomitant]
     Route: 048
  4. DIDROGYL [Concomitant]
     Route: 048
  5. RANIDIL [Concomitant]
     Route: 048
  6. CALCIUM SANDOZ [Concomitant]
     Route: 048
  7. QUARK [Concomitant]
     Route: 048

REACTIONS (2)
  - Erythema [Recovered/Resolved]
  - Vomiting [Recovered/Resolved]
